FAERS Safety Report 22977403 (Version 3)
Quarter: 2024Q3

REPORT INFORMATION
  Report Type: Spontaneous
  Country: US (occurrence: US)
  Receive Date: 20230925
  Receipt Date: 20240806
  Transmission Date: 20241016
  Serious: No
  Sender: LEO PHARM
  Company Number: US-LEO Pharma-363043

PATIENT
  Age: 58 Year
  Sex: Female

DRUGS (1)
  1. ADBRY [Suspect]
     Active Substance: TRALOKINUMAB-LDRM
     Indication: Dermatitis atopic
     Route: 058

REACTIONS (7)
  - Alopecia [Recovered/Resolved]
  - Dry skin [Recovered/Resolved]
  - Dry eye [Unknown]
  - Arthralgia [Recovered/Resolved]
  - Dermatitis atopic [Recovered/Resolved]
  - Weight increased [Unknown]
  - Eye pain [Unknown]
